FAERS Safety Report 10392989 (Version 1)
Quarter: 2014Q3

REPORT INFORMATION
  Report Type: Report from Study
  Country: ES (occurrence: ES)
  Receive Date: 20140819
  Receipt Date: 20140819
  Transmission Date: 20150326
  Serious: Yes (Other)
  Sender: FDA-Public Use
  Company Number: ES-PFIZER INC-2014218477

PATIENT
  Age: 81 Year
  Sex: Male

DRUGS (4)
  1. OMEPRAZOLE. [Suspect]
     Active Substance: OMEPRAZOLE
     Dosage: UNK, ONCE DAILY
     Route: 048
     Dates: start: 2014
  2. HIGROTONA [Suspect]
     Active Substance: CHLORTHALIDONE
     Dosage: 50 MG, 1X/DAY
     Route: 048
     Dates: start: 2014
  3. EPLERENONE. [Suspect]
     Active Substance: EPLERENONE
     Dosage: 25 MG, UNK
     Route: 048
     Dates: start: 2014
  4. ALIPZA [Suspect]
     Active Substance: PITAVASTATIN
     Dosage: 1 MG, UNK
     Route: 048
     Dates: start: 2014

REACTIONS (2)
  - Jaundice [Recovering/Resolving]
  - Cholestasis [Recovering/Resolving]

NARRATIVE: CASE EVENT DATE: 2014
